FAERS Safety Report 4463374-1 (Version None)
Quarter: 2004Q3

REPORT INFORMATION
  Report Type: 
  Country: None (occurrence: None)
  Receive Date: 20040928
  Receipt Date: 20040917
  Transmission Date: 20050211
  Serious: Yes (Death)
  Sender: FDA-Public Use
  Company Number: 2004067547

PATIENT
  Age: 87 Year
  Sex: Male

DRUGS (1)
  1. DOXAZOSIN (DOXAZOSIN) [Suspect]
     Indication: BENIGN NEOPLASM OF PROSTATE
     Dosage: 2 MG (2 MG, 1 IN 1 D), ORAL
     Route: 048
     Dates: start: 20040801, end: 20040901

REACTIONS (4)
  - CARDIAC FAILURE ACUTE [None]
  - DIZZINESS [None]
  - HEADACHE [None]
  - MALAISE [None]
